FAERS Safety Report 23362927 (Version 1)
Quarter: 2024Q1

REPORT INFORMATION
  Report Type: Spontaneous
  Country: JP (occurrence: JP)
  Receive Date: 20240103
  Receipt Date: 20240103
  Transmission Date: 20240409
  Serious: Yes (Disabling)
  Sender: FDA-Public Use
  Company Number: JP-Eisai-202001677_LEN-HCC_P_1

PATIENT
  Age: 64 Year
  Sex: Male
  Weight: 68.7 kg

DRUGS (9)
  1. LENVIMA [Suspect]
     Active Substance: LENVATINIB
     Indication: Hepatocellular carcinoma
     Route: 048
     Dates: start: 20190808
  2. LENVIMA [Suspect]
     Active Substance: LENVATINIB
     Route: 048
  3. LENVIMA [Suspect]
     Active Substance: LENVATINIB
     Route: 048
     Dates: start: 20200518
  4. LENVIMA [Suspect]
     Active Substance: LENVATINIB
     Dosage: UNKNOWN DOSE
     Route: 048
     Dates: start: 20200704, end: 20200707
  5. LENVIMA [Suspect]
     Active Substance: LENVATINIB
     Dosage: UNKNOWN DOSE AND FREQUENCY
     Route: 048
     Dates: start: 20200711, end: 20200714
  6. LENVIMA [Suspect]
     Active Substance: LENVATINIB
     Dosage: UNKNOWN DOSE AND FREQUENCY
     Route: 048
     Dates: start: 20200727
  7. LENVIMA [Suspect]
     Active Substance: LENVATINIB
     Dosage: UNKNOWN DOSE AND FREQUENCY
     Route: 048
  8. LOXOPROFEN SODIUM [Concomitant]
     Active Substance: LOXOPROFEN SODIUM
     Indication: Product used for unknown indication
     Dosage: UNKNOWN DOSE AND FREQUENCY
     Dates: start: 202101
  9. CALONAL [Concomitant]
     Active Substance: ACETAMINOPHEN
     Indication: Product used for unknown indication
     Dosage: UNKNOWN DOSE AND FREQUENCY

REACTIONS (4)
  - Back pain [Not Recovered/Not Resolved]
  - Malaise [Recovering/Resolving]
  - Chest pain [Recovered/Resolved]
  - Muscular weakness [Not Recovered/Not Resolved]

NARRATIVE: CASE EVENT DATE: 20200516
